FAERS Safety Report 11384318 (Version 1)
Quarter: 2015Q3

REPORT INFORMATION
  Report Type: Spontaneous
  Country: US (occurrence: US)
  Receive Date: 20150811
  Receipt Date: 20150811
  Transmission Date: 20151125
  Serious: No
  Sender: FDA-Public Use
  Company Number: US-ELI_LILLY_AND_COMPANY-US201008003575

PATIENT
  Sex: Male

DRUGS (2)
  1. CIALIS [Suspect]
     Active Substance: TADALAFIL
     Indication: ERECTILE DYSFUNCTION
     Dosage: 20 MG, UNK
  2. CIALIS [Suspect]
     Active Substance: TADALAFIL
     Dosage: 5 MG, QOD

REACTIONS (5)
  - Medication error [Unknown]
  - Drug administration error [Unknown]
  - Drug ineffective [Not Recovered/Not Resolved]
  - Intentional overdose [Recovered/Resolved]
  - Intentional product misuse [Recovered/Resolved]
